FAERS Safety Report 12063309 (Version 1)
Quarter: 2016Q1

REPORT INFORMATION
  Report Type: Spontaneous
  Country: US (occurrence: US)
  Receive Date: 20160210
  Receipt Date: 20160210
  Transmission Date: 20160526
  Serious: No
  Sender: FDA-Public Use
  Company Number: US-BIOMARINAP-US-2015-108892

PATIENT
  Sex: Male

DRUGS (1)
  1. KUVAN [Suspect]
     Active Substance: SAPROPTERIN DIHYDROCHLORIDE
     Indication: PHENYLKETONURIA
     Dosage: 500 MG, QD
     Route: 048

REACTIONS (6)
  - Lower limb fracture [Unknown]
  - Amino acid level increased [Unknown]
  - Disturbance in attention [Unknown]
  - Adenoidectomy [Unknown]
  - Malaise [Unknown]
  - Affect lability [Unknown]
